FAERS Safety Report 15057136 (Version 1)
Quarter: 2018Q2

REPORT INFORMATION
  Report Type: Spontaneous
  Country: US (occurrence: US)
  Receive Date: 20180604
  Receipt Date: 20180604
  Transmission Date: 20180711
  Serious: Yes (Other)
  Sender: FDA-Public Use
  Company Number: None

PATIENT
  Age: 67 Year
  Sex: Male
  Weight: 83.25 kg

DRUGS (2)
  1. SO2GO SPRAY [Concomitant]
  2. DELSYM [Suspect]
     Active Substance: DEXTROMETHORPHAN
     Indication: COUGH
     Dosage: ?          QUANTITY:10 ML;?
     Route: 048
     Dates: start: 20180515, end: 20180516

REACTIONS (4)
  - Wheezing [None]
  - Reaction to preservatives [None]
  - Product label confusion [None]
  - Product formulation issue [None]

NARRATIVE: CASE EVENT DATE: 20180515
